FAERS Safety Report 4684359-6 (Version None)
Quarter: 2005Q2

REPORT INFORMATION
  Report Type: 
  Country: None (occurrence: None)
  Receive Date: 20050531
  Receipt Date: 20041025
  Transmission Date: 20051028
  Serious: Yes (Hospitalization)
  Sender: FDA-Public Use
  Company Number: 200416233US

PATIENT
  Age: 65 Year

DRUGS (7)
  1. LOVENOX [Suspect]
     Indication: KNEE ARTHROPLASTY
     Dates: start: 20040727
  2. ASPIRIN [Concomitant]
  3. AVAPRO [Concomitant]
  4. CARDIZEM [Concomitant]
  5. PROMETHAZINE HCL [Concomitant]
  6. PEPCID [Concomitant]
  7. METFORMIN HCL [Concomitant]

REACTIONS (10)
  - ADRENAL HAEMORRHAGE [None]
  - ADRENAL INSUFFICIENCY [None]
  - BLOOD CORTISOL DECREASED [None]
  - HYPONATRAEMIA [None]
  - HYPOTENSION [None]
  - NAUSEA [None]
  - PYREXIA [None]
  - THROMBOCYTOPENIA [None]
  - TRANSAMINASES INCREASED [None]
  - VOMITING [None]
